FAERS Safety Report 23439519 (Version 1)
Quarter: 2024Q1

REPORT INFORMATION
  Report Type: Spontaneous
  Country: US (occurrence: US)
  Receive Date: 20240124
  Receipt Date: 20240124
  Transmission Date: 20240410
  Serious: Yes (Hospitalization)
  Sender: FDA-Public Use
  Company Number: US-BRISTOL-MYERS SQUIBB COMPANY-2024-011827

PATIENT
  Age: 91 Year
  Sex: Male
  Weight: 71.67 kg

DRUGS (2)
  1. REVLIMID [Suspect]
     Active Substance: LENALIDOMIDE
     Indication: Plasma cell myeloma
     Dosage: DOSE : 2.5 MG;     FREQ : EVERY OTHER DAY FOR 14 DAYS AND OFF FOR 7 DAYS
     Route: 048
  2. XTANDI [Concomitant]
     Active Substance: ENZALUTAMIDE
     Indication: Product used for unknown indication
     Dosage: DOSE : 2.5 MG;     FREQ : EVERY OTHER DAY FOR 14 DAYS AND OFF FOR 7 DAYS

REACTIONS (3)
  - Headache [Unknown]
  - Off label use [Unknown]
  - Blood pressure systolic increased [Recovered/Resolved]

NARRATIVE: CASE EVENT DATE: 20240121
